FAERS Safety Report 13417279 (Version 1)
Quarter: 2017Q2

REPORT INFORMATION
  Report Type: Spontaneous
  Country: US (occurrence: US)
  Receive Date: 20170406
  Receipt Date: 20170406
  Transmission Date: 20170830
  Serious: No
  Sender: FDA-Public Use
  Company Number: US-GLAXOSMITHKLINE-US2017045733

PATIENT
  Age: 61 Year
  Sex: Female

DRUGS (3)
  1. FLONASE [Suspect]
     Active Substance: FLUTICASONE PROPIONATE
     Indication: EYE PRURITUS
  2. FLONASE [Suspect]
     Active Substance: FLUTICASONE PROPIONATE
     Indication: SINUS CONGESTION
  3. FLONASE [Suspect]
     Active Substance: FLUTICASONE PROPIONATE
     Indication: EYE DISORDER
     Dosage: UNK

REACTIONS (3)
  - Feeling abnormal [Unknown]
  - Drug interaction [Unknown]
  - Product use in unapproved indication [Unknown]
